FAERS Safety Report 5685008-0 (Version None)
Quarter: 2008Q1

REPORT INFORMATION
  Report Type: 
  Country: None (occurrence: None)
  Receive Date: 20080328
  Receipt Date: 19970610
  Transmission Date: 20080703
  Serious: Yes (Death, Hospitalization)
  Sender: FDA-Public Use
  Company Number: FR-ROCHE-82502

PATIENT
  Age: 102 Year
  Sex: Female

DRUGS (3)
  1. ROCEPHIN [Suspect]
     Route: 042
     Dates: start: 19970304
  2. AUGMENTIN FORTE [Suspect]
     Route: 048
     Dates: start: 19970210, end: 19970226
  3. OROKEN [Suspect]
     Route: 048
     Dates: start: 19970228, end: 19970304

REACTIONS (4)
  - DEATH [None]
  - DIARRHOEA [None]
  - PSEUDOMEMBRANOUS COLITIS [None]
  - PYREXIA [None]
